FAERS Safety Report 8848914 (Version 2)
Quarter: 2012Q4

REPORT INFORMATION
  Report Type: 
  Country: NL (occurrence: NL)
  Receive Date: 20121018
  Receipt Date: 20121105
  Transmission Date: 20130627
  Serious: Yes (Other)
  Sender: FDA-Public Use
  Company Number: PHHY2012NL081758

PATIENT
  Age: 73 Year
  Sex: Male

DRUGS (12)
  1. ZOMETA [Suspect]
     Indication: PROSTATE CANCER
     Dosage: 4 mg every 28 days
     Route: 042
  2. ZOMETA [Suspect]
     Dosage: 4 mg every 28 days
     Route: 042
     Dates: start: 20111207
  3. ZOMETA [Suspect]
     Dosage: 4 mg every 28 days
     Route: 042
     Dates: start: 20120820
  4. ZOMETA [Suspect]
     Dosage: 4 mg every 28 days
     Route: 042
     Dates: start: 20120919
  5. ZOMETA [Suspect]
     Dosage: 4 mg every 28 days, iv in 20 minutes
     Route: 042
     Dates: start: 20121016
  6. METOCLOPRAMIDE [Concomitant]
     Dosage: 10 mg, PRN
  7. PREDNISONE [Concomitant]
     Dosage: 5 mg, BID
  8. VENTOLIN [Concomitant]
     Dosage: UNK UKN, PRN
  9. SERETIDE [Concomitant]
     Dosage: 50/250 twice daily 1 puff, BID
  10. AVODART [Concomitant]
     Dosage: 0.5 mg, QD
  11. FENTANYL [Concomitant]
     Dosage: 12 mg, once per 3 days
  12. FIRMAGON [Concomitant]
     Dosage: 80 mg, QMO

REACTIONS (7)
  - General physical health deterioration [Unknown]
  - Weight decreased [Not Recovered/Not Resolved]
  - Asthenia [Unknown]
  - Bone pain [Not Recovered/Not Resolved]
  - Haemoglobin decreased [Not Recovered/Not Resolved]
  - Pain [Recovered/Resolved]
  - Pyrexia [Recovered/Resolved]
